FAERS Safety Report 25802298 (Version 1)
Quarter: 2025Q3

REPORT INFORMATION
  Report Type: Spontaneous
  Country: US (occurrence: None)
  Receive Date: 20250913
  Receipt Date: 20250913
  Transmission Date: 20251021
  Serious: Yes (Hospitalization)
  Sender: FDA-CTU
  Company Number: None

PATIENT
  Age: 54 Year
  Sex: Female
  Weight: 106 kg

DRUGS (4)
  1. ZOSYN [Suspect]
     Active Substance: PIPERACILLIN SODIUM\TAZOBACTAM SODIUM
     Dates: start: 20250906
  2. CEPHALEXIN [Suspect]
     Active Substance: CEPHALEXIN
  3. AMPICILLIN [Suspect]
     Active Substance: AMPICILLIN
  4. CEFACLOR [Suspect]
     Active Substance: CEFACLOR

REACTIONS (6)
  - Eosinophilia [None]
  - Pyrexia [None]
  - Documented hypersensitivity to administered product [None]
  - Drug reaction with eosinophilia and systemic symptoms [None]
  - Device computer issue [None]
  - Product prescribing issue [None]

NARRATIVE: CASE EVENT DATE: 20250906
